FAERS Safety Report 22054968 (Version 2)
Quarter: 2023Q2

REPORT INFORMATION
  Report Type: Report from Study
  Country: US (occurrence: US)
  Receive Date: 20230302
  Receipt Date: 20230414
  Transmission Date: 20230722
  Serious: Yes (Other)
  Sender: FDA-Public Use
  Company Number: US-BIOGEN-2023BI01190403

PATIENT
  Sex: Male

DRUGS (1)
  1. ADUHELM [Suspect]
     Active Substance: ADUCANUMAB-AVWA
     Indication: Product used for unknown indication
     Route: 050
     Dates: end: 20220728

REACTIONS (3)
  - Cerebral microhaemorrhage [Unknown]
  - Brain oedema [Unknown]
  - Dizziness [Unknown]
